FAERS Safety Report 16357468 (Version 1)
Quarter: 2019Q2

REPORT INFORMATION
  Report Type: Spontaneous
  Country: DE (occurrence: DE)
  Receive Date: 20190527
  Receipt Date: 20190527
  Transmission Date: 20190711
  Serious: Yes (Other)
  Sender: FDA-Public Use
  Company Number: DE-BRISTOL-MYERS SQUIBB COMPANY-BMS-2019-048198

PATIENT
  Age: 51 Year
  Sex: Female

DRUGS (5)
  1. ORENCIA [Suspect]
     Active Substance: ABATACEPT
     Indication: COAGULATION FACTOR V LEVEL ABNORMAL
     Route: 065
  2. LITALIR [Concomitant]
     Active Substance: HYDROXYUREA
     Indication: OSTEOPOROSIS
     Dosage: UNK
     Route: 065
  3. ORENCIA [Suspect]
     Active Substance: ABATACEPT
     Indication: MYELOPROLIFERATIVE NEOPLASM
     Route: 065
  4. ORENCIA [Suspect]
     Active Substance: ABATACEPT
     Indication: POLYARTHRITIS
     Dosage: UNK
     Route: 065
     Dates: start: 201702
  5. ACLASTA [Concomitant]
     Active Substance: ZOLEDRONIC ACID
     Indication: OSTEOPOROSIS
     Dosage: UNK
     Route: 065

REACTIONS (2)
  - Optic neuritis [Unknown]
  - Product use in unapproved indication [Unknown]
